FAERS Safety Report 16065542 (Version 1)
Quarter: 2019Q1

REPORT INFORMATION
  Report Type: Spontaneous
  Country: TR (occurrence: TR)
  Receive Date: 20190313
  Receipt Date: 20190313
  Transmission Date: 20190418
  Serious: Yes (Other)
  Sender: FDA-Public Use
  Company Number: TR-LUPIN PHARMACEUTICALS INC.-2018-09292

PATIENT
  Age: 32 Year
  Sex: Female

DRUGS (4)
  1. ARIPIPRAZOLE. [Interacting]
     Active Substance: ARIPIPRAZOLE
     Indication: PSYCHOTIC DISORDER
     Dosage: 5 MG, QD
     Route: 065
  2. ARIPIPRAZOLE. [Interacting]
     Active Substance: ARIPIPRAZOLE
     Dosage: UNK
     Route: 065
  3. QUETIAPINE FUMARATE EXTENDED-RELEASE [Suspect]
     Active Substance: QUETIAPINE FUMARATE
     Indication: PSYCHOTIC DISORDER
     Dosage: 300 MG, QD, 4 MONTHS AGO (XR)
     Route: 065
  4. WARFARIN [Interacting]
     Active Substance: WARFARIN
     Indication: THROMBOSIS PROPHYLAXIS
     Dosage: UNK, 2 YEARS AGO
     Route: 065

REACTIONS (3)
  - Weight increased [Unknown]
  - International normalised ratio increased [Recovered/Resolved]
  - Drug interaction [Unknown]
